FAERS Safety Report 25792644 (Version 3)
Quarter: 2025Q4

REPORT INFORMATION
  Report Type: Report from Study
  Country: US (occurrence: US)
  Receive Date: 20250911
  Receipt Date: 20251113
  Transmission Date: 20260118
  Serious: Yes (Other)
  Sender: MALLINCKRODT
  Company Number: US-MALLINCKRODT-MNK202505624

PATIENT
  Sex: Female

DRUGS (4)
  1. CORTICOTROPIN [Suspect]
     Active Substance: CORTICOTROPIN
     Indication: Punctate keratitis
     Dosage: 80 UNITS
     Route: 058
  2. REMICADE [Concomitant]
     Active Substance: INFLIXIMAB
     Dosage: UNKNOWN
  3. TYLENOL [Concomitant]
     Active Substance: ACETAMINOPHEN
     Dosage: UNKNOWN
  4. VIVA [PANAX GINSENG] [Concomitant]
     Indication: Dry eye
     Dosage: UNKNOWN

REACTIONS (3)
  - Rheumatoid arthritis [Not Recovered/Not Resolved]
  - Injection site pain [Unknown]
  - Insomnia [Unknown]
